FAERS Safety Report 5085607-3 (Version None)
Quarter: 2006Q3

REPORT INFORMATION
  Report Type: 
  Country: None (occurrence: None)
  Receive Date: 20060822
  Receipt Date: 20060817
  Transmission Date: 20061208
  Serious: Yes (Hospitalization)
  Sender: FDA-Public Use
  Company Number: FR-LMS-060114

PATIENT
  Age: 68 Year
  Sex: Female

DRUGS (6)
  1. NABUMETONE [Suspect]
     Route: 048
     Dates: start: 20060308, end: 20060323
  2. MACROGOL [Suspect]
     Indication: COLONOSCOPY
     Dosage: 1Z PER DAY
     Route: 048
     Dates: start: 20060322
  3. VALSARTAN [Suspect]
     Dosage: 80MG PER DAY
     Route: 048
     Dates: end: 20060323
  4. MEDIVEINE [Concomitant]
  5. TRAMADOL HCL [Concomitant]
  6. HYDROCORTISONE TAB [Concomitant]
     Dates: end: 20060323

REACTIONS (8)
  - DIARRHOEA [None]
  - DRUG INTERACTION [None]
  - HYPERCREATININAEMIA [None]
  - HYPOTENSION [None]
  - NEPHROPATHY [None]
  - RENAL FAILURE [None]
  - RENAL FAILURE ACUTE [None]
  - RENAL TUBULAR NECROSIS [None]
